FAERS Safety Report 9030557 (Version 1)
Quarter: 2013Q1

REPORT INFORMATION
  Report Type: Spontaneous
  Country: FR (occurrence: FR)
  Receive Date: 20130122
  Receipt Date: 20130122
  Transmission Date: 20140127
  Serious: Yes (Other)
  Sender: FDA-Public Use
  Company Number: FR-TEVA-380131ISR

PATIENT
  Age: 72 Year
  Sex: Female

DRUGS (2)
  1. OXALIPLATINE [Suspect]
     Indication: COLORECTAL CANCER
     Dosage: INFUSION OVER 2 HOURS
     Route: 041
     Dates: start: 201210, end: 20121113
  2. TOMUDEX [Suspect]
     Indication: COLORECTAL CANCER
     Dosage: INFUSION OVER 15 MINUTES
     Route: 041
     Dates: start: 201210

REACTIONS (3)
  - Eyelid ptosis [Recovered/Resolved]
  - Secondary hypertension [Recovered/Resolved]
  - Muscular weakness [Recovered/Resolved]
